FAERS Safety Report 9580788 (Version 1)
Quarter: 2013Q4

REPORT INFORMATION
  Report Type: Spontaneous
  Country: US (occurrence: None)
  Receive Date: 20131001
  Receipt Date: 20131001
  Transmission Date: 20140711
  Serious: Yes (Disabling)
  Sender: FDA-Public Use
  Company Number: None

PATIENT
  Age: 84 Year
  Sex: Female
  Weight: 49.9 kg

DRUGS (9)
  1. TRAMADOL/ACETAMINOPHEN [Suspect]
     Indication: PAIN
     Dosage: 2 TABLETS
     Route: 048
     Dates: start: 20130719, end: 20130731
  2. TRAMADOL/ACETAMINOPHEN [Suspect]
     Indication: SPINAL FRACTURE
     Dosage: 2 TABLETS
     Route: 048
     Dates: start: 20130719, end: 20130731
  3. CADUET [Concomitant]
  4. FOSAMAX [Concomitant]
  5. IBUPROFEN [Concomitant]
  6. CALCITONIN NASAL SPRAY [Concomitant]
  7. CENTRUM (SILVER) [Concomitant]
  8. CALCIUM MAGNESIUM ZINC [Concomitant]
  9. D3-2000 [Concomitant]

REACTIONS (7)
  - Somnolence [None]
  - Confusional state [None]
  - Constipation [None]
  - Weight decreased [None]
  - Decreased appetite [None]
  - Rash generalised [None]
  - Rash erythematous [None]
